FAERS Safety Report 6887142-6 (Version None)
Quarter: 2010Q3

REPORT INFORMATION
  Report Type: 
  Country: None (occurrence: None)
  Receive Date: 20100730
  Receipt Date: 20100722
  Transmission Date: 20110219
  Serious: Yes (Hospitalization)
  Sender: FDA-Public Use
  Company Number: FR-PFIZER INC-2010091573

PATIENT
  Age: 60 Year
  Sex: Male

DRUGS (1)
  1. AMLOR [Suspect]
     Dosage: UNK
     Route: 048
     Dates: start: 20091215, end: 20100609

REACTIONS (2)
  - PSORIASIS [None]
  - TOXIC SKIN ERUPTION [None]
